FAERS Safety Report 22994273 (Version 3)
Quarter: 2023Q4

REPORT INFORMATION
  Report Type: Report from Study
  Country: US (occurrence: None)
  Receive Date: 20230927
  Receipt Date: 20231116
  Transmission Date: 20240110
  Serious: Yes (Hospitalization)
  Sender: FDA-Public Use
  Company Number: US-ROCHE-3424870

PATIENT
  Age: 56 Year
  Sex: Female
  Weight: 163 kg

DRUGS (7)
  1. TRASTUZUMAB [Suspect]
     Active Substance: TRASTUZUMAB
     Indication: HER2 negative breast cancer
     Route: 041
     Dates: start: 20230626, end: 20230828
  2. PERTUZUMAB [Suspect]
     Active Substance: PERTUZUMAB
     Indication: HER2 negative breast cancer
     Route: 042
     Dates: start: 20230626, end: 20230828
  3. DOXORUBICIN [Concomitant]
     Active Substance: DOXORUBICIN
     Indication: HER2 negative breast cancer
     Route: 042
     Dates: start: 20230501, end: 20230612
  4. CYCLOPHOSPHAMIDE [Concomitant]
     Active Substance: CYCLOPHOSPHAMIDE
     Indication: HER2 negative breast cancer
     Route: 065
     Dates: start: 20230501, end: 20230612
  5. PACLITAXEL [Concomitant]
     Active Substance: PACLITAXEL
     Indication: HER2 negative breast cancer
     Dosage: 80 MG/M^2=150MG/M^2 WEEKLY
     Route: 065
     Dates: start: 20230626, end: 20230821
  6. PACLITAXEL [Concomitant]
     Active Substance: PACLITAXEL
     Dosage: 65 MG/M^2=120MG/M^2 WEEKLY-DOSE REDUCTION
     Route: 065
     Dates: start: 20230828, end: 20230828
  7. PACLITAXEL [Concomitant]
     Active Substance: PACLITAXEL
     Dosage: 50 MG/M^2=90MG/M^2 WEEKLY-DOSE REDUCTION
     Route: 065
     Dates: start: 20230905, end: 20230911

REACTIONS (3)
  - Cardiac failure [Recovered/Resolved]
  - Respiratory failure [Recovered/Resolved]
  - Left ventricular dysfunction [Recovering/Resolving]

NARRATIVE: CASE EVENT DATE: 20230911
